FAERS Safety Report 15574948 (Version 1)
Quarter: 2018Q4

REPORT INFORMATION
  Report Type: Spontaneous
  Country: CA (occurrence: CA)
  Receive Date: 20181101
  Receipt Date: 20181101
  Transmission Date: 20190205
  Serious: Yes (Other)
  Sender: FDA-Public Use
  Company Number: CA-IGSA-SR10007230

PATIENT
  Age: 18 Year
  Sex: Male
  Weight: 61.22 kg

DRUGS (1)
  1. HYPERRAB S/D [Suspect]
     Active Substance: HUMAN RABIES VIRUS IMMUNE GLOBULIN
     Indication: RABIES IMMUNISATION
     Dosage: UNK UNK, SINGLE
     Route: 030

REACTIONS (7)
  - Depressed level of consciousness [Recovered/Resolved]
  - Immunisation reaction [Recovered/Resolved]
  - Hyperhidrosis [Recovered/Resolved]
  - Syncope [Recovered/Resolved]
  - Nausea [Recovered/Resolved]
  - Asthenia [Recovered/Resolved]
  - Paraesthesia [Recovered/Resolved]
